FAERS Safety Report 9568605 (Version 1)
Quarter: 2013Q3

REPORT INFORMATION
  Report Type: Spontaneous
  Country: US (occurrence: US)
  Receive Date: 20130930
  Receipt Date: 20130930
  Transmission Date: 20140515
  Serious: No
  Sender: FDA-Public Use
  Company Number: US-AMGEN-USASP2013061850

PATIENT
  Age: 44 Year
  Sex: Female
  Weight: 102.4 kg

DRUGS (10)
  1. ENBREL [Suspect]
     Indication: PRODUCT USED FOR UNKNOWN INDICATION
     Dosage: 50 MG, QWK
     Route: 058
  2. METHOTREXATE [Concomitant]
     Dosage: 2.5 MG, UNK
  3. NAPROXEN [Concomitant]
     Dosage: 500 MG, UNK
  4. OMEPRAZOLE [Concomitant]
     Dosage: 40 MG, UNK
  5. BUTALBITAL/APAP [Concomitant]
     Dosage: 50-235 MG, UNK
  6. VITAMIN B12                        /00056201/ [Concomitant]
     Dosage: 500 MUG, UNK
  7. VITAMIN D                          /00107901/ [Concomitant]
     Dosage: 2000 UNIT, UNK
  8. GLUCOSAMINE [Concomitant]
     Dosage: UNK
  9. FOLIC ACID [Concomitant]
     Dosage: UNK
  10. SALMON OIL [Concomitant]
     Dosage: UNK

REACTIONS (2)
  - Headache [Unknown]
  - Vision blurred [Unknown]
